FAERS Safety Report 25839985 (Version 2)
Quarter: 2025Q4

REPORT INFORMATION
  Report Type: Spontaneous
  Country: US (occurrence: US)
  Receive Date: 20250924
  Receipt Date: 20251010
  Transmission Date: 20260117
  Serious: Yes (Hospitalization, Other)
  Sender: TEVA
  Company Number: US-TEVA-VS-3374114

PATIENT
  Age: 31 Year
  Sex: Male

DRUGS (5)
  1. CARBOPLATIN [Suspect]
     Active Substance: CARBOPLATIN
     Indication: Hepatosplenic T-cell lymphoma
     Dosage: RECEIVED ONE CYCLE; PART OF ICE REGIMEN
     Route: 065
  2. ETOPOSIDE [Suspect]
     Active Substance: ETOPOSIDE
     Indication: Hepatosplenic T-cell lymphoma
     Dosage: RECEIVED ONE CYCLE; PART OF ICE REGIMEN
     Route: 065
  3. AZACITIDINE [Suspect]
     Active Substance: AZACITIDINE
     Indication: Hepatosplenic T-cell lymphoma
     Route: 065
  4. IFOSFAMIDE [Suspect]
     Active Substance: IFOSFAMIDE
     Indication: Hepatosplenic T-cell lymphoma
     Dosage: RECEIVED ONE CYCLE; PART OF ICE REGIMEN
     Route: 065
  5. ROMIDEPSIN [Suspect]
     Active Substance: ROMIDEPSIN
     Indication: Hepatosplenic T-cell lymphoma
     Route: 065

REACTIONS (3)
  - Drug ineffective [Unknown]
  - Cytopenia [Unknown]
  - Drug intolerance [Unknown]
